FAERS Safety Report 21526944 (Version 10)
Quarter: 2023Q4

REPORT INFORMATION
  Report Type: Report from Study
  Country: US (occurrence: US)
  Receive Date: 20221031
  Receipt Date: 20231030
  Transmission Date: 20240110
  Serious: Yes (Other)
  Sender: FDA-Public Use
  Company Number: US-NOVARTISTESTPH-NVSC2022US243649

PATIENT
  Age: 62 Year
  Sex: Female

DRUGS (4)
  1. LEQVIO [Suspect]
     Active Substance: INCLISIRAN SODIUM
     Indication: Product used for unknown indication
     Dosage: UNK (DAY 0)
     Route: 058
     Dates: start: 20220827
  2. LEQVIO [Suspect]
     Active Substance: INCLISIRAN SODIUM
     Dosage: UNK (FIRST INJECTION)
     Route: 058
     Dates: start: 20220927
  3. LEQVIO [Suspect]
     Active Substance: INCLISIRAN SODIUM
     Dosage: UNK (SECOND INJECTION)
     Route: 058
     Dates: start: 20221228
  4. LEQVIO [Suspect]
     Active Substance: INCLISIRAN SODIUM
     Dosage: UNK (THIRD INJECTION IN JUNE)
     Route: 065

REACTIONS (8)
  - Faeces discoloured [Recovered/Resolved]
  - Nephrolithiasis [Unknown]
  - Diarrhoea [Recovered/Resolved]
  - Abdominal discomfort [Unknown]
  - Liver disorder [Unknown]
  - Pain [Unknown]
  - Diarrhoea [Unknown]
  - Inappropriate schedule of product administration [Unknown]

NARRATIVE: CASE EVENT DATE: 20220927
